FAERS Safety Report 10176731 (Version 1)
Quarter: 2014Q2

REPORT INFORMATION
  Report Type: Spontaneous
  Country: US (occurrence: None)
  Receive Date: 20140515
  Receipt Date: 20140515
  Transmission Date: 20141212
  Serious: Yes (Life-Threatening)
  Sender: FDA-Public Use
  Company Number: None

PATIENT
  Age: 43 Year
  Sex: Male
  Weight: 106.6 kg

DRUGS (1)
  1. ZANTAC [Suspect]
     Indication: DYSPEPSIA
     Dosage: 2 PILLS?
     Route: 048
     Dates: start: 20140505, end: 20140505

REACTIONS (7)
  - Heart rate irregular [None]
  - Paraesthesia [None]
  - Hypoaesthesia [None]
  - Chest discomfort [None]
  - Blood pressure increased [None]
  - Dyspnoea [None]
  - Confusional state [None]
